FAERS Safety Report 8491233-6 (Version None)
Quarter: 2012Q3

REPORT INFORMATION
  Report Type: 
  Country: None (occurrence: None)
  Receive Date: 20120706
  Receipt Date: 20120629
  Transmission Date: 20120928
  Serious: Yes (Other)
  Sender: FDA-Public Use
  Company Number: PHHY2012DE035680

PATIENT
  Age: 77 Year
  Sex: Male

DRUGS (5)
  1. ZOLEDRONOC ACID [Suspect]
     Indication: OSTEOPOROSIS
     Dosage: 5 MG/ YEARLY, UNK
     Route: 042
  2. ZOLEDRONOC ACID [Suspect]
     Dosage: 5 MG/ YEARLY, UNK
     Route: 042
  3. CALCIUM CARBONATE [Concomitant]
     Dosage: 500 MG, UNK
  4. ZOLEDRONOC ACID [Suspect]
     Dosage: 5 MG/ YEARLY, UNK
     Route: 042
  5. MARCUMAR [Concomitant]
     Dosage: UNK UKN, UNK

REACTIONS (2)
  - LUMBAR VERTEBRAL FRACTURE [None]
  - TOOTH LOSS [None]
